FAERS Safety Report 20103752 (Version 3)
Quarter: 2021Q4

REPORT INFORMATION
  Report Type: Spontaneous
  Country: US (occurrence: US)
  Receive Date: 20211123
  Receipt Date: 20211230
  Transmission Date: 20220303
  Serious: Yes (Other)
  Sender: FDA-Public Use
  Company Number: US-PFIZER INC-2021605440

PATIENT
  Age: 87 Year
  Sex: Male

DRUGS (1)
  1. VYNDAMAX [Suspect]
     Active Substance: TAFAMIDIS
     Indication: Amyloidosis
     Dosage: 61 MG

REACTIONS (14)
  - Left ventricular failure [Unknown]
  - Tricuspid valve incompetence [Unknown]
  - Atrial fibrillation [Unknown]
  - Trifascicular block [Unknown]
  - Atrial fibrillation [Unknown]
  - Cardiac amyloidosis [Unknown]
  - Aortic valve stenosis [Unknown]
  - Aortic valve disease [Unknown]
  - Cervical radiculopathy [Unknown]
  - Intervertebral disc degeneration [Unknown]
  - Essential hypertension [Unknown]
  - Coronary artery disease [Unknown]
  - Type V hyperlipidaemia [Unknown]
  - Hypoacusis [Unknown]
